FAERS Safety Report 14542711 (Version 1)
Quarter: 2018Q1

REPORT INFORMATION
  Report Type: Spontaneous
  Country: CH (occurrence: CH)
  Receive Date: 20180216
  Receipt Date: 20180216
  Transmission Date: 20180509
  Serious: Yes (Hospitalization, Other)
  Sender: FDA-Public Use
  Company Number: CH-OTSUKA-DJ201406714

PATIENT
  Age: 24 Year
  Sex: Female

DRUGS (9)
  1. TRUXAL [Concomitant]
     Active Substance: CHLORPROTHIXENE
     Indication: BORDERLINE PERSONALITY DISORDER
     Route: 048
     Dates: start: 20140619
  2. NOZINAN [Concomitant]
     Active Substance: LEVOMEPROMAZINE
     Indication: AFFECT LABILITY
     Route: 048
     Dates: start: 20140617
  3. FLUOXETINE [Concomitant]
     Active Substance: FLUOXETINE HYDROCHLORIDE
     Indication: AFFECT LABILITY
     Dosage: 120 MG, QD
     Route: 048
     Dates: start: 20140613
  4. LITHIUM. [Concomitant]
     Active Substance: LITHIUM
     Indication: AFFECT LABILITY
     Route: 048
     Dates: start: 20140707
  5. STILNOX [Concomitant]
     Active Substance: ZOLPIDEM TARTRATE
     Indication: PRODUCT USED FOR UNKNOWN INDICATION
     Route: 065
  6. LYRICA [Concomitant]
     Active Substance: PREGABALIN
     Indication: PRODUCT USED FOR UNKNOWN INDICATION
     Route: 065
  7. TRUXAL [Concomitant]
     Active Substance: CHLORPROTHIXENE
     Indication: AFFECT LABILITY
  8. VALIUM [Concomitant]
     Active Substance: DIAZEPAM
     Indication: MUSCLE SPASMS
     Route: 065
     Dates: start: 20140718, end: 20140728
  9. ABILIFY [Suspect]
     Active Substance: ARIPIPRAZOLE
     Indication: AFFECT LABILITY
     Dosage: 20 MG, UNK
     Route: 048
     Dates: start: 20140709, end: 20140717

REACTIONS (3)
  - Off label use [Unknown]
  - Antipsychotic drug level increased [Recovered/Resolved]
  - Generalised tonic-clonic seizure [Recovered/Resolved]

NARRATIVE: CASE EVENT DATE: 20140709
